FAERS Safety Report 18221215 (Version 1)
Quarter: 2020Q3

REPORT INFORMATION
  Report Type: Spontaneous
  Country: SE (occurrence: SE)
  Receive Date: 20200902
  Receipt Date: 20200902
  Transmission Date: 20201103
  Serious: Yes (Other)
  Sender: FDA-Public Use
  Company Number: SE-LUPIN PHARMACEUTICALS INC.-2020-05456

PATIENT
  Sex: Male
  Weight: 3.1 kg

DRUGS (5)
  1. BETAMETHASONE. [Suspect]
     Active Substance: BETAMETHASONE
     Indication: MATERNAL THERAPY TO ENHANCE FOETAL LUNG MATURITY
     Dosage: 12 MILLIGRAM (FIRST DOSE)
     Route: 064
  2. BETAMETHASONE. [Suspect]
     Active Substance: BETAMETHASONE
     Dosage: 12 MILLIGRAM (SECOND DOSE)
     Route: 064
  3. PIPERACILLIN/TAZOBACTAM [Suspect]
     Active Substance: PIPERACILLIN SODIUM\TAZOBACTAM SODIUM
     Indication: ANTIBIOTIC PROPHYLAXIS
     Dosage: UNK
     Route: 064
  4. TINZAPARIN [Suspect]
     Active Substance: TINZAPARIN
     Indication: THROMBOSIS PROPHYLAXIS
     Dosage: UNK (8000 IE)
     Route: 064
  5. TINZAPARIN [Suspect]
     Active Substance: TINZAPARIN
     Dosage: UNK (16000 IE IN TWO DOSES)
     Route: 064

REACTIONS (4)
  - Neonatal respiratory acidosis [Unknown]
  - Atelectasis [Unknown]
  - Foetal exposure during pregnancy [Unknown]
  - Premature baby [Unknown]
